FAERS Safety Report 5948372-0 (Version None)
Quarter: 2008Q4

REPORT INFORMATION
  Report Type: 
  Country: None (occurrence: None)
  Receive Date: 20081110
  Receipt Date: 20081110
  Transmission Date: 20090506
  Serious: Yes (Life-Threatening)
  Sender: FDA-Public Use
  Company Number: None

PATIENT
  Age: 81 Year
  Sex: Female
  Weight: 91.7 kg

DRUGS (2)
  1. ISOVUE-370 [Suspect]
     Indication: COMPUTERISED TOMOGRAM
     Dosage: 300 ML ONCE IV
     Route: 042
     Dates: start: 20081106, end: 20081106
  2. ISOVUE-370 [Suspect]

REACTIONS (1)
  - CARDIO-RESPIRATORY ARREST [None]
